FAERS Safety Report 9479607 (Version 20)
Quarter: 2019Q1

REPORT INFORMATION
  Report Type: Report from Study
  Country: CA (occurrence: CA)
  Receive Date: 20130827
  Receipt Date: 20190225
  Transmission Date: 20190418
  Serious: Yes (Other)
  Sender: FDA-Public Use
  Company Number: PHHY2013CA078479

PATIENT
  Age: 68 Year
  Sex: Female

DRUGS (2)
  1. SANDOSTATIN LAR DEPOT [Suspect]
     Active Substance: OCTREOTIDE ACETATE
     Indication: HEPATOCELLULAR CARCINOMA
     Dosage: 30 MG, QW3
     Route: 030
     Dates: start: 20170524
  2. SANDOSTATIN LAR DEPOT [Suspect]
     Active Substance: OCTREOTIDE ACETATE
     Indication: NEUROENDOCRINE TUMOUR
     Dosage: 30 MG, QMO (EVERY 4 WEEKS)
     Route: 030
     Dates: start: 20130502, end: 20170502

REACTIONS (27)
  - Ascites [Recovering/Resolving]
  - Blood pressure systolic decreased [Unknown]
  - Weight decreased [Unknown]
  - Abdominal pain [Unknown]
  - Dizziness [Unknown]
  - Chills [Unknown]
  - Pain [Unknown]
  - Heart rate decreased [Unknown]
  - Abdominal pain upper [Unknown]
  - Blood pressure increased [Unknown]
  - Human epidermal growth factor receptor decreased [Unknown]
  - Blood pressure diastolic decreased [Unknown]
  - Gastrointestinal disorder [Unknown]
  - Hepatic enzyme increased [Unknown]
  - Amino acid level decreased [Unknown]
  - Influenza [Unknown]
  - Platelet count decreased [Unknown]
  - Pain in extremity [Unknown]
  - Dyspepsia [Unknown]
  - Flatulence [Unknown]
  - Malaise [Unknown]
  - Intervertebral disc protrusion [Unknown]
  - Abdominal distension [Unknown]
  - Inappropriate schedule of product administration [Unknown]
  - Intestinal obstruction [Unknown]
  - Malignant neoplasm progression [Unknown]
  - Blood creatinine increased [Unknown]

NARRATIVE: CASE EVENT DATE: 2013
